FAERS Safety Report 6297994-9 (Version None)
Quarter: 2009Q3

REPORT INFORMATION
  Report Type: 
  Country: None (occurrence: None)
  Receive Date: 20090805
  Receipt Date: 20090728
  Transmission Date: 20100115
  Serious: Yes (Other)
  Sender: FDA-Public Use
  Company Number: B0586844A

PATIENT
  Age: 36 Year
  Sex: Female

DRUGS (2)
  1. AROPAX [Suspect]
     Indication: ANXIETY
     Route: 065
  2. UNKNOWN ANTIDEPRESSANT [Suspect]

REACTIONS (6)
  - ANXIETY [None]
  - DEPRESSION [None]
  - DIZZINESS [None]
  - MALAISE [None]
  - SUICIDAL IDEATION [None]
  - WITHDRAWAL SYNDROME [None]
